FAERS Safety Report 16848296 (Version 4)
Quarter: 2021Q1

REPORT INFORMATION
  Report Type: Spontaneous
  Country: GB (occurrence: GB)
  Receive Date: 20190925
  Receipt Date: 20210302
  Transmission Date: 20210419
  Serious: Yes (Death, Congenital Anomaly, Other)
  Sender: FDA-Public Use
  Company Number: GB-TEVA-2019-GB-1111761

PATIENT
  Sex: Female
  Weight: 3.43 kg

DRUGS (4)
  1. PREZCOBIX [Suspect]
     Active Substance: COBICISTAT\DARUNAVIR ETHANOLATE
     Indication: HIV INFECTION
     Dosage: 1 DOSAGE FORMS DAILY;
     Route: 064
  2. RALTEGRAVIR POTASSIUM [Suspect]
     Active Substance: RALTEGRAVIR POTASSIUM
     Indication: PRODUCT USED FOR UNKNOWN INDICATION
     Dosage: UNK, 1200
     Route: 064
  3. ABACAVIR, LAMIVUDINE [Suspect]
     Active Substance: ABACAVIR SULFATE\LAMIVUDINE
     Indication: HIV INFECTION
     Dosage: 1 DOSAGE FORMS DAILY; DOSE: 1 TABLET/CAPSULE;
     Route: 064
  4. DARUNAVIR [Suspect]
     Active Substance: DARUNAVIR
     Indication: HIV INFECTION
     Dosage: DOSE: 1 TABLET/CAPSULE;, THERAPY START DATE : ASKU, THERAPY END DATE : ASKU
     Route: 064

REACTIONS (4)
  - Foetal exposure during pregnancy [Recovered/Resolved]
  - Foetal growth restriction [Fatal]
  - Gastroschisis [Unknown]
  - Brain injury [Fatal]

NARRATIVE: CASE EVENT DATE: 20190107
